FAERS Safety Report 8476424-2 (Version None)
Quarter: 2012Q2

REPORT INFORMATION
  Report Type: 
  Country: None (occurrence: None)
  Receive Date: 20120628
  Receipt Date: 20120626
  Transmission Date: 20120825
  Serious: Yes (Death, Other)
  Sender: FDA-Public Use
  Company Number: PHHY2012CN054666

PATIENT
  Age: 27 Year
  Sex: Female

DRUGS (4)
  1. PREDNISONE TAB [Suspect]
     Indication: LUPUS NEPHRITIS
     Dosage: 40 MG, DAILY DOSE
  2. PREDNISONE TAB [Suspect]
     Dosage: 15 MG, DAILY DOSE
  3. CYCLOPHOSPHAMIDE [Suspect]
     Indication: LUPUS NEPHRITIS
     Dosage: 0.4 G, QW
  4. AZATHIOPRINE [Suspect]
     Dosage: 0.1 G, DAILY DOSE
     Route: 048

REACTIONS (15)
  - PULMONARY TUBERCULOSIS [None]
  - ASTHENIA [None]
  - PURULENT DISCHARGE [None]
  - PHAEHYPHOMYCOSIS [None]
  - DEATH [None]
  - COUGH [None]
  - SKIN PLAQUE [None]
  - CUSHINGOID [None]
  - OEDEMA [None]
  - DECREASED APPETITE [None]
  - ERYTHEMA [None]
  - SKIN LESION [None]
  - WEIGHT DECREASED [None]
  - PYREXIA [None]
  - SKIN MASS [None]
